FAERS Safety Report 19712877 (Version 1)
Quarter: 2021Q3

REPORT INFORMATION
  Report Type: Spontaneous
  Country: BR (occurrence: BR)
  Receive Date: 20210816
  Receipt Date: 20210816
  Transmission Date: 20211014
  Serious: Yes (Other)
  Sender: FDA-Public Use
  Company Number: BR-MALLINCKRODT PHARMACEUTICALS-T202103699

PATIENT
  Age: 79 Year
  Sex: Male

DRUGS (2)
  1. AMITIZA [Suspect]
     Active Substance: LUBIPROSTONE
     Dosage: 8 MICROGRAM, Q8H
     Route: 065
  2. AMITIZA [Suspect]
     Active Substance: LUBIPROSTONE
     Indication: PRODUCT USED FOR UNKNOWN INDICATION
     Dosage: 24 MICROGRAM
     Route: 065

REACTIONS (4)
  - Adverse drug reaction [Unknown]
  - Blood pressure decreased [Unknown]
  - Dizziness [Unknown]
  - Dysentery [Unknown]
